FAERS Safety Report 10743409 (Version 3)
Quarter: 2016Q3

REPORT INFORMATION
  Report Type: Report from Study
  Country: US (occurrence: US)
  Receive Date: 20150128
  Receipt Date: 20160905
  Transmission Date: 20161109
  Serious: Yes (Hospitalization, Other)
  Sender: FDA-Public Use
  Company Number: US-ROCHE-1523563

PATIENT
  Age: 39 Year
  Sex: Male
  Weight: 102.1 kg

DRUGS (15)
  1. ONDANSETRON [Concomitant]
     Active Substance: ONDANSETRON
  2. SODIUM CHLORIDE. [Concomitant]
     Active Substance: SODIUM CHLORIDE
  3. BEVACIZUMAB [Suspect]
     Active Substance: BEVACIZUMAB
     Indication: MALIGNANT MELANOMA
     Dosage: DOSE 15MG/KG, LAST ADMINISTERED DOSE 09/DEC/2014?DATE OF LAST DOSE PRIOR TO SAE: 30/DEC/2014
     Route: 042
     Dates: start: 20141028
  4. DOCUSATE SODIUM. [Concomitant]
     Active Substance: DOCUSATE SODIUM
  5. AUGMENTIN [Concomitant]
     Active Substance: AMOXICILLIN\CLAVULANATE POTASSIUM
  6. TYLENOL [Concomitant]
     Active Substance: ACETAMINOPHEN
  7. METFORMIN [Concomitant]
     Active Substance: METFORMIN HYDROCHLORIDE
  8. SIMVASTATIN. [Concomitant]
     Active Substance: SIMVASTATIN
  9. ASPIRIN. [Concomitant]
     Active Substance: ASPIRIN
  10. MARIJUANA [Concomitant]
     Active Substance: CANNABIS SATIVA SUBSP. INDICA TOP
  11. BEVACIZUMAB [Suspect]
     Active Substance: BEVACIZUMAB
     Dosage: DOSE 15MG/KG, LAST ADMINISTERED DOSE 18/NOV/2014,  09/DEC/2014
     Route: 042
     Dates: end: 20141209
  12. IPILIMUMAB [Suspect]
     Active Substance: IPILIMUMAB
     Indication: MALIGNANT MELANOMA
     Dosage: DOSE 3MG/KG, LAST DOSE ADMINISTERED 09/DEC/2014
     Route: 042
     Dates: start: 20141028
  13. IPILIMUMAB [Suspect]
     Active Substance: IPILIMUMAB
     Dosage: DOSE 3MG/KG, LAST DOSE ADMINISTERED, 18/NOV/2014, 09/DEC/2014
     Route: 042
     Dates: end: 20141209
  14. LISINOPRIL. [Concomitant]
     Active Substance: LISINOPRIL
  15. ACETAMINOPHEN. [Concomitant]
     Active Substance: ACETAMINOPHEN
     Route: 065

REACTIONS (7)
  - Hyponatraemia [Recovering/Resolving]
  - Fatigue [Recovering/Resolving]
  - Encephalopathy [Recovered/Resolved]
  - Vomiting [Recovered/Resolved]
  - Endocrine disorder [Unknown]
  - Abdominal pain [Unknown]
  - Rash maculo-papular [Recovered/Resolved]

NARRATIVE: CASE EVENT DATE: 20141125
